FAERS Safety Report 6948583-1 (Version None)
Quarter: 2010Q3

REPORT INFORMATION
  Report Type: 
  Country: None (occurrence: None)
  Receive Date: 20100828
  Receipt Date: 20091116
  Transmission Date: 20110219
  Serious: No
  Sender: FDA-Public Use
  Company Number: US-ABBOTT-09P-163-0609421-00

PATIENT
  Sex: Female
  Weight: 72.64 kg

DRUGS (4)
  1. NIASPAN [Suspect]
     Indication: BLOOD TRIGLYCERIDES INCREASED
     Route: 048
     Dates: start: 20091113
  2. UNKNOWN MEDICATION [Concomitant]
     Indication: BLOOD CHOLESTEROL INCREASED
  3. METOPROLOL [Concomitant]
     Indication: HYPERTENSION
  4. GLYBURIDE [Concomitant]
     Indication: BLOOD GLUCOSE INCREASED

REACTIONS (1)
  - BLOOD GLUCOSE INCREASED [None]
